FAERS Safety Report 6745206-1 (Version None)
Quarter: 2010Q2

REPORT INFORMATION
  Report Type: 
  Country: None (occurrence: None)
  Receive Date: 20100528
  Receipt Date: 20100520
  Transmission Date: 20101027
  Serious: Yes (Hospitalization, Other)
  Sender: FDA-Public Use
  Company Number: US-BIOGENIDEC-2010BI017049

PATIENT
  Sex: Female

DRUGS (7)
  1. TYSABRI [Suspect]
     Indication: MULTIPLE SCLEROSIS
     Route: 042
     Dates: start: 20090716
  2. KEPPRA [Concomitant]
     Indication: CONVULSION
     Dates: start: 20040101
  3. LAMICTAL [Concomitant]
     Indication: CONVULSION
     Dates: start: 20040101
  4. AMANTADINE HCL [Concomitant]
     Indication: IMMUNE SYSTEM DISORDER
  5. LORAZEPAM [Concomitant]
     Indication: SEDATIVE THERAPY
  6. DIASTAT [Concomitant]
     Indication: CONVULSION
     Route: 054
  7. MIDAZOLAM HCL [Concomitant]
     Indication: CONVULSION

REACTIONS (4)
  - CONVULSION [None]
  - DISORIENTATION [None]
  - DRY MOUTH [None]
  - SLEEP DISORDER [None]
